FAERS Safety Report 23469361 (Version 2)
Quarter: 2024Q1

REPORT INFORMATION
  Report Type: Spontaneous
  Country: US (occurrence: US)
  Receive Date: 20240202
  Receipt Date: 20240327
  Transmission Date: 20240410
  Serious: No
  Sender: FDA-Public Use
  Company Number: US-ABBVIE-5614372

PATIENT
  Age: 68 Year
  Sex: Female
  Weight: 165 kg

DRUGS (1)
  1. BOTOX [Suspect]
     Active Substance: ONABOTULINUMTOXINA
     Indication: Product used for unknown indication
     Dosage: TIME INTERVAL: AS NECESSARY
     Route: 058
     Dates: start: 20240105, end: 20240105

REACTIONS (3)
  - Lacrimation increased [Unknown]
  - Adverse drug reaction [Unknown]
  - Eye disorder [Unknown]

NARRATIVE: CASE EVENT DATE: 20240118
